FAERS Safety Report 5480527-4 (Version None)
Quarter: 2007Q4

REPORT INFORMATION
  Report Type: 
  Country: None (occurrence: None)
  Receive Date: 20071009
  Receipt Date: 20070914
  Transmission Date: 20080405
  Serious: Yes (Other)
  Sender: FDA-Public Use
  Company Number: US-JNJFOC-20070902940

PATIENT
  Age: 78 Year
  Sex: Male
  Weight: 108.86 kg

DRUGS (7)
  1. TYLENOL (CAPLET) [Suspect]
  2. TYLENOL (CAPLET) [Suspect]
     Indication: PAIN
  3. FLOMAX [Concomitant]
  4. ATENOLOL [Concomitant]
  5. PLAVIX [Concomitant]
  6. COUMADIN [Concomitant]
  7. ASPIRIN [Concomitant]

REACTIONS (1)
  - HAEMATOCHEZIA [None]
